FAERS Safety Report 19451815 (Version 1)
Quarter: 2021Q2

REPORT INFORMATION
  Report Type: Spontaneous
  Country: US (occurrence: US)
  Receive Date: 20210623
  Receipt Date: 20210623
  Transmission Date: 20210717
  Serious: Yes (Hospitalization)
  Sender: FDA-Public Use
  Company Number: US-STRONGBRIDGE BIOPHARMA-2021-STR-000213

PATIENT
  Sex: Female

DRUGS (1)
  1. KEVEYIS [Suspect]
     Active Substance: DICHLORPHENAMIDE
     Indication: PRODUCT USED FOR UNKNOWN INDICATION
     Dosage: 75 MG, BID
     Route: 048
     Dates: start: 20180303

REACTIONS (5)
  - Loss of consciousness [Recovering/Resolving]
  - Respiratory fume inhalation disorder [Recovering/Resolving]
  - Disease recurrence [Recovering/Resolving]
  - Wrong technique in product usage process [Unknown]
  - Mechanical ventilation [Recovering/Resolving]
